FAERS Safety Report 14150248 (Version 2)
Quarter: 2017Q4

REPORT INFORMATION
  Report Type: Spontaneous
  Country: IT (occurrence: IT)
  Receive Date: 20171101
  Receipt Date: 20171115
  Transmission Date: 20180321
  Serious: Yes (Other)
  Sender: FDA-Public Use
  Company Number: IT-ELI_LILLY_AND_COMPANY-IT201710009866

PATIENT
  Age: 65 Year
  Sex: Female
  Weight: 46 kg

DRUGS (3)
  1. GEMZAR [Suspect]
     Active Substance: GEMCITABINE HYDROCHLORIDE
     Dosage: 864 MG, CYCLICAL
     Route: 042
     Dates: start: 20171103
  2. GEMZAR [Suspect]
     Active Substance: GEMCITABINE HYDROCHLORIDE
     Indication: PANCREATIC CARCINOMA
     Dosage: 1152 MG, CYCLICAL
     Route: 042
     Dates: start: 20170614
  3. ABRAXANE [Suspect]
     Active Substance: PACLITAXEL
     Indication: PANCREATIC CARCINOMA
     Dosage: 108 MG, CYCLICAL
     Dates: start: 20171003

REACTIONS (4)
  - Incontinence [Unknown]
  - Leukopenia [Unknown]
  - Erythropenia [Unknown]
  - Haemoglobin decreased [Unknown]

NARRATIVE: CASE EVENT DATE: 20171023
